FAERS Safety Report 24980528 (Version 1)
Quarter: 2025Q1

REPORT INFORMATION
  Report Type: Report from Study
  Country: CA (occurrence: CA)
  Receive Date: 20250218
  Receipt Date: 20250218
  Transmission Date: 20250409
  Serious: Yes (Death)
  Sender: MYLAN
  Company Number: CA-MYLANLABS-2025M1012259

PATIENT
  Age: 76 Year
  Sex: Female

DRUGS (1)
  1. CLOZAPINE [Suspect]
     Active Substance: CLOZAPINE
     Indication: Delusional disorder, unspecified type
     Dosage: 50 MILLIGRAM, PM (DAILY AT BEDTIME BY MOUTH) (START DATE: ON OR ABOUT 6-APR-2021)
     Route: 048
     Dates: start: 202104

REACTIONS (2)
  - Cardiac failure congestive [Fatal]
  - Off label use [Unknown]

NARRATIVE: CASE EVENT DATE: 20210401
